FAERS Safety Report 7500953-9 (Version None)
Quarter: 2011Q2

REPORT INFORMATION
  Report Type: 
  Country: None (occurrence: None)
  Receive Date: 20110524
  Receipt Date: 20110505
  Transmission Date: 20111010
  Serious: No
  Sender: FDA-Public Use
  Company Number: US-B.I. PHARMACEUTICALS,INC./RIDGEFIELD-2011-BP-12461BP

PATIENT
  Age: 79 Year
  Sex: Female

DRUGS (7)
  1. GEMFIBROZIL [Concomitant]
     Indication: BLOOD CHOLESTEROL INCREASED
  2. INHALERS OTC [Concomitant]
     Indication: ASTHMA
  3. LEVOTHYROXINE SODIUM [Concomitant]
     Indication: THYROID THERAPY
  4. LISINOPRIL [Concomitant]
     Indication: HYPERTENSION
  5. VERPAMIL HCL [Concomitant]
     Indication: ATRIAL FIBRILLATION
  6. RANITIDINE [Concomitant]
     Indication: GASTROOESOPHAGEAL REFLUX DISEASE
  7. PRADAXA [Suspect]
     Indication: ATRIAL FIBRILLATION
     Dosage: 300 MG
     Route: 048
     Dates: start: 20110316

REACTIONS (6)
  - ASTHENIA [None]
  - RESTLESS LEGS SYNDROME [None]
  - PRURITUS GENERALISED [None]
  - ARTHRALGIA [None]
  - FATIGUE [None]
  - PAIN OF SKIN [None]
